FAERS Safety Report 6438537-6 (Version None)
Quarter: 2009Q4

REPORT INFORMATION
  Report Type: 
  Country: None (occurrence: None)
  Receive Date: 20091112
  Receipt Date: 20091104
  Transmission Date: 20100525
  Serious: Yes (Other)
  Sender: FDA-Public Use
  Company Number: US-GENENTECH-294006

PATIENT
  Age: 60 Year
  Sex: Male
  Weight: 100.3 kg

DRUGS (6)
  1. BEVACIZUMAB [Suspect]
     Indication: RENAL CANCER
     Dosage: 5 MG/KG, D1,15,29
     Route: 043
     Dates: start: 20090217
  2. SU11248 [Suspect]
     Indication: RENAL CANCER METASTATIC
     Dosage: 37.5 MG, DAYS 1-28
     Route: 048
     Dates: start: 20090217
  3. AMLODIPINE [Concomitant]
     Indication: DRUG USE FOR UNKNOWN INDICATION
  4. HYDROCORTISONE [Concomitant]
     Indication: DRUG USE FOR UNKNOWN INDICATION
  5. ESOMEPRAZOLE MAGNESIUM [Concomitant]
     Indication: DRUG USE FOR UNKNOWN INDICATION
  6. ADVAIR DISKUS 100/50 [Concomitant]
     Indication: DRUG USE FOR UNKNOWN INDICATION

REACTIONS (1)
  - THROMBOTIC MICROANGIOPATHY [None]
